FAERS Safety Report 8910677 (Version 1)
Quarter: 2012Q4

REPORT INFORMATION
  Report Type: Spontaneous
  Country: GB (occurrence: None)
  Receive Date: 20121108
  Receipt Date: 20121108
  Transmission Date: 20130627
  Serious: Yes (Hospitalization)
  Sender: FDA-Public Use
  Company Number: GER/UKI/12/0026475

PATIENT
  Age: 76 Year
  Sex: Male

DRUGS (5)
  1. GEMCITABINE (GEMCITABINE) [Suspect]
     Indication: TRANSITIONAL CELL CARCINOMA
     Dates: start: 20120919
  2. GEMCITABINE (GEMCITABINE) [Suspect]
     Indication: UROTHELIAL CARCINOMA
     Dates: start: 20120919
  3. CISPLATIN [Suspect]
     Indication: TRANSITIONAL CELL CARCINOMA
     Dates: start: 20120919
  4. CISPLATIN [Suspect]
     Indication: UROTHELIAL CARCINOMA
     Dates: start: 20120919
  5. SUNITINIB MALATE [Suspect]
     Indication: TRANSITIONAL CELL CARCINOMA
     Dates: start: 20120919

REACTIONS (5)
  - Diarrhoea [None]
  - Mucosal inflammation [None]
  - Nausea [None]
  - Neutropenic sepsis [None]
  - Vomiting [None]
